FAERS Safety Report 9909825 (Version 1)
Quarter: 2014Q1

REPORT INFORMATION
  Report Type: Spontaneous
  Country: US (occurrence: None)
  Receive Date: 20140218
  Receipt Date: 20140218
  Transmission Date: 20141002
  Serious: Yes (Life-Threatening, Other)
  Sender: FDA-Public Use
  Company Number: None

PATIENT
  Age: 54 Year
  Sex: Female
  Weight: 74.84 kg

DRUGS (1)
  1. DULOXETINE HCL [Suspect]
     Route: 048
     Dates: start: 20140114, end: 20140206

REACTIONS (11)
  - Withdrawal syndrome [None]
  - Neuralgia [None]
  - Hypoaesthesia [None]
  - Depression [None]
  - Fibromyalgia [None]
  - Cystitis interstitial [None]
  - Hot flush [None]
  - Cerebral haemorrhage [None]
  - Migraine [None]
  - Blood pressure increased [None]
  - Product substitution issue [None]
